FAERS Safety Report 8291183-4 (Version None)
Quarter: 2012Q2

REPORT INFORMATION
  Report Type: 
  Country: None (occurrence: None)
  Receive Date: 20120417
  Receipt Date: 20120410
  Transmission Date: 20120825
  Serious: Yes (Hospitalization, Disabling)
  Sender: FDA-Public Use
  Company Number: JP-B.I. PHARMACEUTICALS,INC./RIDGEFIELD-2012-BP-04452NB

PATIENT
  Sex: Male
  Weight: 76 kg

DRUGS (6)
  1. CILOSTAZOL [Concomitant]
     Indication: PROPHYLAXIS
     Dosage: 200 MG
     Route: 048
     Dates: start: 20111222
  2. CONIEL [Concomitant]
     Indication: HYPERTENSION
     Dosage: 8 MG
     Route: 048
  3. BASEN [Concomitant]
     Indication: DIABETES MELLITUS
     Dosage: 0.6 MG
     Route: 048
     Dates: start: 20120210, end: 20120226
  4. TRAZENTA [Suspect]
     Indication: DIABETES MELLITUS
     Dosage: 5 MG
     Route: 048
     Dates: start: 20120213
  5. ALFAROL [Concomitant]
     Indication: PROPHYLAXIS
     Dosage: 0.25 MCG
     Route: 048
     Dates: start: 20110722
  6. ZETIA [Concomitant]
     Indication: HYPERLIPIDAEMIA
     Dosage: 10 MG
     Route: 048
     Dates: start: 20120108

REACTIONS (2)
  - HERPES ZOSTER [None]
  - DYSPHONIA [None]
